FAERS Safety Report 8352637-5 (Version None)
Quarter: 2012Q2

REPORT INFORMATION
  Report Type: 
  Country: None (occurrence: None)
  Receive Date: 20120511
  Receipt Date: 20120508
  Transmission Date: 20120825
  Serious: Yes (Other)
  Sender: FDA-Public Use
  Company Number: JP-PFIZER INC-2010173077

PATIENT
  Age: 77 Year
  Sex: Female

DRUGS (5)
  1. SUTENT [Suspect]
     Indication: RENAL CELL CARCINOMA
     Dosage: 37.5 MG, 1X/DAY
     Route: 048
     Dates: start: 20100313, end: 20101201
  2. ADALAT [Suspect]
     Dosage: 20 MG, 1X/DAY
     Route: 048
  3. CANDESARTAN CILEXETIL AND HYDROCHLOROTHIAZIDE [Concomitant]
     Dosage: UNK
     Route: 048
  4. ALLOPURINOL [Concomitant]
     Dosage: 300 MG, 1X/DAY
     Route: 048
  5. AMLODIPINE [Suspect]
     Dosage: 5 MG, 1X/DAY
     Route: 048

REACTIONS (3)
  - CYANOSIS [None]
  - BLOOD PRESSURE INCREASED [None]
  - DIZZINESS [None]
